FAERS Safety Report 4435414-7 (Version None)
Quarter: 2004Q3

REPORT INFORMATION
  Report Type: 
  Country: None (occurrence: None)
  Receive Date: 20040826
  Receipt Date: 20040817
  Transmission Date: 20050211
  Serious: Yes (Life-Threatening, Hospitalization)
  Sender: FDA-Public Use
  Company Number: 2004225752JP

PATIENT
  Age: 75 Year
  Sex: Male

DRUGS (3)
  1. CABERGOLINE [Suspect]
     Indication: PARKINSON'S DISEASE
     Dosage: ORAL
     Route: 048
     Dates: start: 20010521, end: 20040727
  2. SYMMETREL [Concomitant]
  3. MELLERIL (THIORIDAZINE HYDROCHLORIDE) [Concomitant]

REACTIONS (9)
  - ASCITES [None]
  - CONDITION AGGRAVATED [None]
  - DISEASE RECURRENCE [None]
  - PERICARDIAL CALCIFICATION [None]
  - PERICARDIAL EFFUSION [None]
  - PERICARDIAL FIBROSIS [None]
  - PERICARDITIS CONSTRICTIVE [None]
  - PLEURAL EFFUSION [None]
  - RESPIRATORY DISORDER [None]
